FAERS Safety Report 6301815 (Version 3)
Quarter: 2015Q4

REPORT INFORMATION
  Report Type: Spontaneous
  Country: JP (occurrence: JP)
  Receive Date: 20070501
  Receipt Date: 20151219
  Transmission Date: 20160305
  Serious: Yes (Other)
  Sender: FDA-Public Use
  Company Number: JP-BRISTOL-MYERS SQUIBB COMPANY-13392873

PATIENT
  Age: 29 Year
  Sex: Female

DRUGS (4)
  1. VIRACEPT [Suspect]
     Active Substance: NELFINAVIR MESYLATE
     Indication: HIV INFECTION
     Dosage: 2500 MG, QD
     Route: 048
     Dates: start: 19990210
  2. RETROVIR [Concomitant]
     Active Substance: ZIDOVUDINE
     Indication: PROPHYLAXIS AGAINST HIV INFECTION
     Dosage: UNK
     Route: 042
     Dates: start: 20050728, end: 20050728
  3. EPIVIR [Suspect]
     Active Substance: LAMIVUDINE
     Indication: HIV INFECTION
     Dosage: 300 MG, QD
     Route: 048
     Dates: start: 19990203
  4. ZERIT [Suspect]
     Active Substance: STAVUDINE
     Indication: HIV INFECTION
     Dosage: 60 MG, QD
     Route: 048
     Dates: start: 19990203

REACTIONS (7)
  - Musculoskeletal pain [Unknown]
  - Blood triglycerides increased [Unknown]
  - Pregnancy [Recovered/Resolved]
  - Deep vein thrombosis [Unknown]
  - Live birth [Unknown]
  - Anaemia [Unknown]
  - Caesarean section [Unknown]

NARRATIVE: CASE EVENT DATE: 20021106
